FAERS Safety Report 7543244-2 (Version None)
Quarter: 2011Q2

REPORT INFORMATION
  Report Type: 
  Country: None (occurrence: None)
  Receive Date: 20110613
  Receipt Date: 20110607
  Transmission Date: 20111010
  Serious: Yes (Other)
  Sender: FDA-Public Use
  Company Number: US-GENZYME-POMP-1001600

PATIENT
  Sex: Male
  Weight: 19.6 kg

DRUGS (4)
  1. MIRALAX [Concomitant]
     Indication: PRODUCT USED FOR UNKNOWN INDICATION
  2. GLYCOPYRROLATE [Concomitant]
     Indication: PRODUCT USED FOR UNKNOWN INDICATION
  3. EMLA [Concomitant]
     Indication: PRODUCT USED FOR UNKNOWN INDICATION
  4. MYOZYME [Suspect]
     Indication: GLYCOGEN STORAGE DISEASE TYPE II
     Dosage: 20 MG/KG, 1X/W
     Route: 042
     Dates: start: 20060501

REACTIONS (3)
  - TENDON DISORDER [None]
  - OXYGEN SATURATION DECREASED [None]
  - HEART RATE INCREASED [None]
